FAERS Safety Report 7272036-7 (Version None)
Quarter: 2011Q1

REPORT INFORMATION
  Report Type: 
  Country: None (occurrence: None)
  Receive Date: 20110127
  Receipt Date: 20110119
  Transmission Date: 20110831
  Serious: Yes (Other)
  Sender: FDA-Public Use
  Company Number: UKP11000005

PATIENT
  Age: 14 Year
  Sex: Female

DRUGS (1)
  1. ASACOL [Suspect]

REACTIONS (1)
  - INTRACRANIAL PRESSURE INCREASED [None]
